FAERS Safety Report 8000372-5 (Version None)
Quarter: 2011Q4

REPORT INFORMATION
  Report Type: 
  Country: None (occurrence: None)
  Receive Date: 20111222
  Receipt Date: 20110916
  Transmission Date: 20120403
  Serious: No
  Sender: FDA-Public Use
  Company Number: US-BAYER-2011-087673

PATIENT
  Age: 77 Year
  Sex: Male

DRUGS (2)
  1. DIGOXIN [Concomitant]
  2. AVELOX [Suspect]
     Indication: PNEUMONIA
     Dosage: 400 MG, QD
     Route: 048
     Dates: start: 20110905

REACTIONS (1)
  - BACK PAIN [None]
